FAERS Safety Report 9292146 (Version 1)
Quarter: 2013Q2

REPORT INFORMATION
  Report Type: Spontaneous
  Country: US (occurrence: US)
  Receive Date: 20130516
  Receipt Date: 20130516
  Transmission Date: 20140414
  Serious: No
  Sender: FDA-Public Use
  Company Number: US-B.I. PHARMACEUTICALS,INC./RIDGEFIELD-2013-BI-13513BP

PATIENT
  Sex: Female
  Weight: 60 kg

DRUGS (7)
  1. SPIRIVA [Suspect]
     Indication: CHRONIC OBSTRUCTIVE PULMONARY DISEASE
     Dosage: 18 MCG
     Route: 055
  2. OMEPRAZOLE [Concomitant]
     Indication: GASTROOESOPHAGEAL REFLUX DISEASE
     Dosage: 20 MG
     Route: 048
  3. NADOLOL [Concomitant]
     Indication: BLOOD PRESSURE
     Dosage: 40 MG
     Route: 048
  4. LISINOPRIL [Concomitant]
     Indication: BLOOD PRESSURE
     Dosage: 40 MG
     Route: 048
  5. PREDNISONE [Concomitant]
     Indication: POLYMYALGIA RHEUMATICA
     Dosage: 5 MG
     Route: 048
  6. COUMADIN [Concomitant]
     Indication: MITRAL VALVE DISEASE
     Dosage: 5 MG
     Route: 048
  7. COUMADIN [Concomitant]
     Dosage: 2.5 MG
     Route: 048

REACTIONS (1)
  - Hypoacusis [Not Recovered/Not Resolved]
